FAERS Safety Report 18238254 (Version 2)
Quarter: 2020Q3

REPORT INFORMATION
  Report Type: Report from Study
  Country: US (occurrence: US)
  Receive Date: 20200907
  Receipt Date: 20200916
  Transmission Date: 20201103
  Serious: Yes (Life-Threatening, Disabling, Other)
  Sender: FDA-Public Use
  Company Number: US-ROCHE-2671246

PATIENT
  Age: 63 Year
  Sex: Female
  Weight: 108.9 kg

DRUGS (24)
  1. IMODIUM [Concomitant]
     Active Substance: LOPERAMIDE HYDROCHLORIDE
     Indication: DIARRHOEA
     Dates: start: 20200712
  2. TOCILIZUMAB. [Suspect]
     Active Substance: TOCILIZUMAB
     Indication: COVID-19 PNEUMONIA
     Dosage: DATE OF MOST RECENT DOSE OF TOCILIZUMAB: 11/JUL/2020 AT 23:34 (100 ML)
     Route: 042
     Dates: start: 20200711
  3. FLEXERIL [Concomitant]
     Active Substance: CYCLOBENZAPRINE HYDROCHLORIDE
     Indication: MUSCLE SPASMS
     Dates: start: 20200814
  4. OXYGEN. [Concomitant]
     Active Substance: OXYGEN
     Indication: DYSPNOEA
     Dosage: 2 OTHERS
     Dates: start: 20200808
  5. ALBUMIN [Concomitant]
     Active Substance: ALBUMIN HUMAN
     Indication: SHOCK
     Dates: start: 20200829, end: 20200829
  6. CIPRO [Concomitant]
     Active Substance: CIPROFLOXACIN HYDROCHLORIDE
     Indication: INTESTINAL PERFORATION
     Dates: start: 20200829, end: 20200830
  7. REMDESIVIR. [Suspect]
     Active Substance: REMDESIVIR
     Indication: COVID-19 PNEUMONIA
     Dosage: RDV LOADING DOSE ON DAY 1, AND A ONCE?DAILY MAINTENANCE DOSE OF REMDESIVIR FROM DAYS 2?10?DATE OF MO
     Route: 042
     Dates: start: 20200711
  8. OXYCODONE [Concomitant]
     Active Substance: OXYCODONE
     Indication: ARTHRALGIA
     Dates: start: 20200711
  9. ZOSYN [Concomitant]
     Active Substance: PIPERACILLIN SODIUM\TAZOBACTAM SODIUM
     Indication: PERITONITIS
  10. LEVOPHED [Concomitant]
     Active Substance: NOREPINEPHRINE BITARTRATE
     Indication: SEPSIS
     Dates: start: 20200827, end: 20200829
  11. LOVENOX [Concomitant]
     Active Substance: ENOXAPARIN SODIUM
     Indication: DEEP VEIN THROMBOSIS
     Dates: start: 20200711
  12. OCEAN SALINE NASAL SPRAY [Concomitant]
     Active Substance: SODIUM CHLORIDE
     Indication: NASAL DRYNESS
     Dosage: 2 SPRAY
     Dates: start: 20200713
  13. FLUCONAZOLE. [Concomitant]
     Active Substance: FLUCONAZOLE
  14. ZOSYN [Concomitant]
     Active Substance: PIPERACILLIN SODIUM\TAZOBACTAM SODIUM
     Indication: INTESTINAL PERFORATION
     Dates: start: 20200827, end: 20200828
  15. LOVENOX [Concomitant]
     Active Substance: ENOXAPARIN SODIUM
     Dates: start: 20200827, end: 20200830
  16. MORPHINE [Concomitant]
     Active Substance: MORPHINE
     Indication: PAIN
     Dates: start: 20200711
  17. DIFLUCAN [Concomitant]
     Active Substance: FLUCONAZOLE
     Indication: ANTIFUNGAL PROPHYLAXIS
     Dates: start: 20200828, end: 20200830
  18. ARIXTRA [Concomitant]
     Active Substance: FONDAPARINUX SODIUM
     Indication: THROMBOCYTOPENIA
     Dates: start: 20200830
  19. TESSALON [Concomitant]
     Active Substance: BENZONATATE
     Indication: COUGH
  20. ANCEF (UNITED STATES) [Concomitant]
     Indication: ABDOMINAL INFECTION
     Dates: start: 20200828
  21. DECADRON [Concomitant]
     Active Substance: DEXAMETHASONE
     Indication: RESPIRATORY FAILURE
     Dates: start: 20200714
  22. MORPHINE [Concomitant]
     Active Substance: MORPHINE
     Indication: HEADACHE
  23. OXYCODONE [Concomitant]
     Active Substance: OXYCODONE
     Indication: PAIN
  24. FLAGYL [Concomitant]
     Active Substance: METRONIDAZOLE\METRONIDAZOLE HYDROCHLORIDE
     Indication: INTESTINAL PERFORATION
     Dates: start: 20200829, end: 20200901

REACTIONS (5)
  - Shock [Not Recovered/Not Resolved]
  - Pulmonary fibrosis [Not Recovered/Not Resolved]
  - Septic shock [Recovered/Resolved]
  - Abdominal sepsis [Not Recovered/Not Resolved]
  - Gastric ulcer perforation [Not Recovered/Not Resolved]

NARRATIVE: CASE EVENT DATE: 20200826
